FAERS Safety Report 22537271 (Version 4)
Quarter: 2023Q2

REPORT INFORMATION
  Report Type: Report from Study
  Country: AR (occurrence: AR)
  Receive Date: 20230608
  Receipt Date: 20230626
  Transmission Date: 20230722
  Serious: Yes (Other)
  Sender: FDA-Public Use
  Company Number: AR-002147023-NVSC2023AR113518

PATIENT
  Age: 8 Year
  Sex: Male

DRUGS (1)
  1. OMNITROPE [Suspect]
     Active Substance: SOMATROPIN
     Indication: Growth hormone deficiency
     Dosage: 1 X 0.7 (UNITS NOT PROVIDED)), EVERY NIGHT
     Route: 058
     Dates: start: 20200717

REACTIONS (6)
  - Growth retardation [Unknown]
  - Crying [Unknown]
  - Cognitive disorder [Unknown]
  - Communication disorder [Unknown]
  - Injection site pain [Recovered/Resolved]
  - Device mechanical issue [Unknown]

NARRATIVE: CASE EVENT DATE: 20230510
